FAERS Safety Report 7691251-1 (Version None)
Quarter: 2011Q3

REPORT INFORMATION
  Report Type: 
  Country: None (occurrence: None)
  Receive Date: 20110817
  Receipt Date: 20110817
  Transmission Date: 20111222
  Serious: Yes (Hospitalization)
  Sender: FDA-Public Use
  Company Number: None

PATIENT
  Age: 53 Year
  Sex: Male
  Weight: 57 kg

DRUGS (1)
  1. DALTEPARIN SODIUM [Suspect]
     Indication: DEEP VEIN THROMBOSIS
     Dosage: 1000 UNITS EVERY DAY SQ
     Route: 058
     Dates: start: 20110121

REACTIONS (3)
  - DEEP VEIN THROMBOSIS [None]
  - TREATMENT FAILURE [None]
  - PULMONARY EMBOLISM [None]
